FAERS Safety Report 4496149-8 (Version None)
Quarter: 2004Q4

REPORT INFORMATION
  Report Type: 
  Country: None (occurrence: None)
  Receive Date: 20041108
  Receipt Date: 20041108
  Transmission Date: 20050328
  Serious: Yes (Other)
  Sender: FDA-Public Use
  Company Number: None

PATIENT
  Sex: Female
  Weight: 45.5 kg

DRUGS (1)
  1. AVELOX [Suspect]
     Indication: PNEUMONIA
     Dosage: ONCE DAILY ORAL
     Route: 048
     Dates: start: 20041101, end: 20041103

REACTIONS (3)
  - ABNORMAL BEHAVIOUR [None]
  - ABNORMAL DREAMS [None]
  - HALLUCINATION [None]
